FAERS Safety Report 5770298-6 (Version None)
Quarter: 2008Q2

REPORT INFORMATION
  Report Type: 
  Country: None (occurrence: None)
  Receive Date: 20080613
  Receipt Date: 20080424
  Transmission Date: 20081010
  Serious: No
  Sender: FDA-Public Use
  Company Number: US-ABBOTT-08P-163-0449067-00

PATIENT
  Sex: Female
  Weight: 99.88 kg

DRUGS (4)
  1. HUMIRA [Suspect]
     Indication: PSORIATIC ARTHROPATHY
     Route: 058
     Dates: start: 20070101, end: 20070701
  2. HUMIRA [Suspect]
     Indication: PSORIASIS
     Route: 058
     Dates: start: 20071101, end: 20080301
  3. HUMIRA [Suspect]
     Route: 058
     Dates: start: 20080301, end: 20080401
  4. HUMIRA [Suspect]
     Route: 058
     Dates: start: 20080423

REACTIONS (6)
  - ARTHRALGIA [None]
  - DENTAL CARIES [None]
  - DRUG DOSE OMISSION [None]
  - GINGIVAL INFECTION [None]
  - INJECTION SITE ERYTHEMA [None]
  - INJECTION SITE PAIN [None]
